FAERS Safety Report 5936966-8 (Version None)
Quarter: 2008Q4

REPORT INFORMATION
  Report Type: 
  Country: None (occurrence: None)
  Receive Date: 20081031
  Receipt Date: 20080930
  Transmission Date: 20090506
  Serious: No
  Sender: FDA-Public Use
  Company Number: US-BAYER-200819031NA

PATIENT
  Age: 40 Year
  Sex: Female

DRUGS (3)
  1. AVELOX [Suspect]
     Indication: SINUSITIS
     Dosage: TOTAL DAILY DOSE: 400 MG  UNIT DOSE: 400 MG
     Route: 048
     Dates: start: 20080204, end: 20080223
  2. CETIRIZINE HCL [Concomitant]
  3. TRIVORA-21 [Concomitant]

REACTIONS (3)
  - ABNORMAL SENSATION IN EYE [None]
  - OCULAR HYPERAEMIA [None]
  - PHOTOPHOBIA [None]
